FAERS Safety Report 6522850-8 (Version None)
Quarter: 2009Q4

REPORT INFORMATION
  Report Type: 
  Country: None (occurrence: None)
  Receive Date: 20091230
  Receipt Date: 20091222
  Transmission Date: 20100525
  Serious: Yes (Hospitalization)
  Sender: FDA-Public Use
  Company Number: FR-AMGEN-US380948

PATIENT
  Age: 82 Year
  Sex: Female

DRUGS (2)
  1. ETANERCEPT [Suspect]
     Indication: POLYARTHRITIS
     Dates: start: 20031001
  2. CORTISONE [Concomitant]
     Dosage: 5 MG; UNSPECIFIED FREQUENCY
     Route: 065
     Dates: start: 20031001

REACTIONS (1)
  - LIP AND/OR ORAL CAVITY CANCER [None]
